FAERS Safety Report 9550421 (Version 1)
Quarter: 2013Q3

REPORT INFORMATION
  Report Type: Spontaneous
  Country: US (occurrence: US)
  Receive Date: 20130924
  Receipt Date: 20130924
  Transmission Date: 20140515
  Serious: No
  Sender: FDA-Public Use
  Company Number: US-SANOFI-AVENTIS-2013SA076851

PATIENT
  Sex: Female
  Weight: 90.71 kg

DRUGS (16)
  1. AUBAGIO [Suspect]
     Route: 048
     Dates: start: 20130502
  2. LISINOPRIL [Concomitant]
  3. METHADONE [Concomitant]
  4. OXYCODONE [Concomitant]
  5. RITALIN [Concomitant]
  6. VITAMIN D [Concomitant]
     Dosage: DOSE:1000 UNIT(S)
  7. VITAMIN B12 [Concomitant]
     Dosage: 1000 CR
  8. ASPIRIN [Concomitant]
  9. SPIRIVA [Concomitant]
  10. ADVAIR DISKUS [Concomitant]
     Dosage: 100/50
  11. TIZANIDINE [Concomitant]
  12. CRESTOR [Concomitant]
  13. OMEPRAZOLE [Concomitant]
  14. CELEBREX [Concomitant]
  15. LYRICA [Concomitant]
  16. BLACK COHOSH [Concomitant]

REACTIONS (1)
  - Neck pain [Unknown]
